FAERS Safety Report 22096107 (Version 3)
Quarter: 2023Q1

REPORT INFORMATION
  Report Type: Spontaneous
  Country: ES (occurrence: ES)
  Receive Date: 20230315
  Receipt Date: 20230330
  Transmission Date: 20230418
  Serious: Yes (Other)
  Sender: FDA-Public Use
  Company Number: ES-MYLANLABS-2023M1023258

PATIENT
  Age: 19 Year
  Sex: Male

DRUGS (1)
  1. ETANERCEPT [Suspect]
     Active Substance: ETANERCEPT
     Indication: Psoriasis
     Dosage: UNK
     Route: 065

REACTIONS (2)
  - Paradoxical psoriasis [Unknown]
  - Guttate psoriasis [Unknown]
